FAERS Safety Report 6906996-8 (Version None)
Quarter: 2010Q3

REPORT INFORMATION
  Report Type: 
  Country: None (occurrence: None)
  Receive Date: 20100804
  Receipt Date: 20071130
  Transmission Date: 20110219
  Serious: No
  Sender: FDA-Public Use
  Company Number: US-PFIZER INC-2007102839

PATIENT

DRUGS (6)
  1. MARAVIROC [Suspect]
     Route: 048
     Dates: end: 20070916
  2. ABACAVIR [Suspect]
     Dosage: 600
     Route: 048
  3. FOSAMPRENAVIR [Suspect]
     Dosage: 1400
     Route: 048
  4. RITONAVIR [Suspect]
     Dosage: 200
     Route: 048
  5. DIDANOSINE [Suspect]
     Dosage: 400
     Route: 048
     Dates: end: 20070916
  6. LAMIVUDINE + ZIDOVUDINE [Suspect]
     Dosage: 900
     Route: 048
     Dates: start: 20070916, end: 20070921

REACTIONS (1)
  - DRUG EXPOSURE DURING PREGNANCY [None]
